FAERS Safety Report 5101262-8 (Version None)
Quarter: 2006Q3

REPORT INFORMATION
  Report Type: 
  Country: None (occurrence: None)
  Receive Date: 20060911
  Receipt Date: 20060829
  Transmission Date: 20061208
  Serious: Yes (Death)
  Sender: FDA-Public Use
  Company Number: IN-AVENTIS-200619180GDDC

PATIENT
  Age: 21 Year
  Sex: Female

DRUGS (3)
  1. ARAVA [Suspect]
     Indication: RHEUMATOID ARTHRITIS
     Route: 048
  2. ARAVA [Suspect]
  3. ROFECOXIB [Concomitant]
     Indication: ARTHRALGIA

REACTIONS (8)
  - DRUG HYPERSENSITIVITY [None]
  - HEPATOMEGALY [None]
  - JAUNDICE [None]
  - PLEURAL EFFUSION [None]
  - PYREXIA [None]
  - RASH PRURITIC [None]
  - TOXIC EPIDERMAL NECROLYSIS [None]
  - WHITE BLOOD CELL COUNT INCREASED [None]
